FAERS Safety Report 13134361 (Version 1)
Quarter: 2017Q1

REPORT INFORMATION
  Report Type: Spontaneous
  Country: US (occurrence: US)
  Receive Date: 20170120
  Receipt Date: 20170120
  Transmission Date: 20170428
  Serious: Yes (Hospitalization, Other)
  Sender: FDA-Public Use
  Company Number: US-PFIZER INC-2017024811

PATIENT
  Age: 28 Year
  Sex: Male
  Weight: 79.38 kg

DRUGS (1)
  1. XANAX [Suspect]
     Active Substance: ALPRAZOLAM
     Indication: ANXIETY
     Dosage: 1 MG, DAILY

REACTIONS (4)
  - Seizure [Recovered/Resolved]
  - Intentional product misuse [Unknown]
  - Drug dependence [Unknown]
  - Malaise [Unknown]

NARRATIVE: CASE EVENT DATE: 201701
